FAERS Safety Report 18958629 (Version 1)
Quarter: 2021Q1

REPORT INFORMATION
  Report Type: Spontaneous
  Country: FI (occurrence: FI)
  Receive Date: 20210302
  Receipt Date: 20210302
  Transmission Date: 20210420
  Serious: Yes (Other)
  Sender: FDA-Public Use
  Company Number: FI-TEVA-2021-FI-1884388

PATIENT
  Age: 52 Year
  Sex: Male

DRUGS (3)
  1. KESTINE LYO [Concomitant]
     Indication: HYPERSENSITIVITY
     Dosage: 20 MILLIGRAM DAILY;
     Route: 048
  2. RAMIPRIL RATIOPHARM [Suspect]
     Active Substance: RAMIPRIL
     Indication: BLOOD PRESSURE INCREASED
     Dosage: 1.25 MILLIGRAM DAILY;
     Route: 048
     Dates: start: 20210121, end: 20210122
  3. TESTAVAN [Concomitant]
     Indication: BLOOD TESTOSTERONE DECREASED
     Dosage: 2 DOSAGE FORMS DAILY;
     Route: 062

REACTIONS (16)
  - Palpitations [Recovered/Resolved]
  - Autonomic nervous system imbalance [Recovered/Resolved]
  - Blood potassium increased [Recovered/Resolved]
  - Nausea [Recovered/Resolved]
  - Cold sweat [Recovered/Resolved]
  - Heart rate decreased [Recovered/Resolved]
  - Dizziness [Recovered/Resolved]
  - Bradycardia [Recovered/Resolved]
  - Blood pressure fluctuation [Recovered/Resolved]
  - Abdominal distension [Recovered/Resolved]
  - Paraesthesia [Recovered/Resolved]
  - Renal pain [Recovered/Resolved]
  - Feeling cold [Recovered/Resolved]
  - Peripheral coldness [Recovered/Resolved]
  - Stupor [Recovered/Resolved]
  - Body temperature decreased [Recovered/Resolved]

NARRATIVE: CASE EVENT DATE: 20210121
